FAERS Safety Report 4771209-2 (Version None)
Quarter: 2005Q3

REPORT INFORMATION
  Report Type: 
  Country: None (occurrence: None)
  Receive Date: 20050912
  Receipt Date: 20050819
  Transmission Date: 20060218
  Serious: Yes (Hospitalization, Other)
  Sender: FDA-Public Use
  Company Number: 2005-00504

PATIENT
  Age: 68 Year
  Sex: Male
  Weight: 109.8 kg

DRUGS (17)
  1. VELCADE [Suspect]
     Indication: MULTIPLE MYELOMA
     Dosage: 2.90 MG, IV BOLUS
     Route: 040
     Dates: start: 20040617, end: 20040713
  2. ANZEMET (DOLSAETRON MESILATE) [Concomitant]
  3. DECADRAN (DEXAMETHASONE SODIUM PHOSPHATE) [Concomitant]
  4. AREDIA [Concomitant]
  5. TENORMIN [Concomitant]
  6. ACIPHEX [Concomitant]
  7. HYDROCHLOROTHIAZIDE [Concomitant]
  8. ALLOPURINOL [Concomitant]
  9. ZESTRIL [Concomitant]
  10. VITAMIN E [Concomitant]
  11. VITAMIN C (ASCORBIC ACID) [Concomitant]
  12. BETACAROTENE (BETACAROTENE) [Concomitant]
  13. GLUCOPHAGE [Concomitant]
  14. PERSANTIN [Concomitant]
  15. DARVOCET-N (PARACETAMOL, DEXTROPROPOXYPHENE NAPSILATE) [Concomitant]
  16. LOVASTATIN [Concomitant]
  17. IMDUR [Concomitant]

REACTIONS (2)
  - CARDIAC FAILURE [None]
  - CHEST PAIN [None]
